FAERS Safety Report 13153682 (Version 2)
Quarter: 2017Q1

REPORT INFORMATION
  Report Type: Spontaneous
  Country: US (occurrence: US)
  Receive Date: 20170126
  Receipt Date: 20170224
  Transmission Date: 20170428
  Serious: No
  Sender: FDA-Public Use
  Company Number: US-GLAXOSMITHKLINE-US2017009551

PATIENT
  Sex: Female

DRUGS (1)
  1. TANZEUM [Suspect]
     Active Substance: ALBIGLUTIDE
     Indication: DIABETES MELLITUS

REACTIONS (4)
  - Injection site pruritus [Unknown]
  - Injection site rash [Unknown]
  - Nausea [Unknown]
  - Product quality issue [Unknown]
